FAERS Safety Report 17663684 (Version 1)
Quarter: 2020Q2

REPORT INFORMATION
  Report Type: Other
  Country: DE (occurrence: DE)
  Receive Date: 20200414
  Receipt Date: 20200414
  Transmission Date: 20200713
  Serious: Yes (Hospitalization)
  Sender: FDA-Public Use
  Company Number: DE-IPCA LABORATORIES LIMITED-IPC-2020-DE-001099

PATIENT

DRUGS (2)
  1. IBUPROFEN 600 MG [Concomitant]
     Active Substance: IBUPROFEN
     Indication: HEADACHE
     Dosage: 600 MILLIGRAM, PRN (BEI BEDARF 1 TABLETTE)
     Route: 048
  2. CETIRIZINE [Suspect]
     Active Substance: CETIRIZINE HYDROCHLORIDE
     Indication: URTICARIA
     Dosage: 10 MILLIGRAM (UP TO 5 X 1 TABLET DAILY)
     Route: 048
     Dates: start: 20190826, end: 201909

REACTIONS (2)
  - Tic [Not Recovered/Not Resolved]
  - Overdose [Unknown]

NARRATIVE: CASE EVENT DATE: 20190921
